FAERS Safety Report 4755680-8 (Version None)
Quarter: 2005Q3

REPORT INFORMATION
  Report Type: 
  Country: None (occurrence: None)
  Receive Date: 20050830
  Receipt Date: 20050629
  Transmission Date: 20060218
  Serious: No
  Sender: FDA-Public Use
  Company Number: US-BRISTOL-MYERS SQUIBB COMPANY-13019880

PATIENT
  Sex: Male
  Weight: 109 kg

DRUGS (3)
  1. ABILIFY [Suspect]
     Indication: BIPOLAR DISORDER
     Route: 048
  2. PRILOSEC [Concomitant]
  3. THYROID TAB [Concomitant]

REACTIONS (2)
  - NAUSEA [None]
  - VOMITING [None]
